FAERS Safety Report 13271939 (Version 2)
Quarter: 2017Q4

REPORT INFORMATION
  Report Type: Spontaneous
  Country: FR (occurrence: FR)
  Receive Date: 20170227
  Receipt Date: 20171116
  Transmission Date: 20180320
  Serious: Yes (Hospitalization, Other)
  Sender: FDA-Public Use
  Company Number: FR-SUN PHARMACEUTICAL INDUSTRIES LTD-2016R1-117861

PATIENT
  Age: 67 Year
  Sex: Male

DRUGS (7)
  1. CARBIDOPA AND LEVODOPA [Concomitant]
     Active Substance: CARBIDOPA\LEVODOPA
     Indication: PARKINSON^S DISEASE
     Route: 065
  2. OMEPRAZOLE. [Concomitant]
     Active Substance: OMEPRAZOLE
     Indication: PARKINSON^S DISEASE
     Route: 065
  3. MIANSERIN [Concomitant]
     Active Substance: MIANSERIN
     Indication: ANTIDEPRESSANT THERAPY
     Route: 065
  4. SILODOSIN [Concomitant]
     Active Substance: SILODOSIN
     Indication: PARKINSON^S DISEASE
     Route: 065
  5. OXAZEPAM. [Concomitant]
     Active Substance: OXAZEPAM
     Indication: PARKINSON^S DISEASE
     Route: 065
  6. CLOZAPINE. [Suspect]
     Active Substance: CLOZAPINE
     Indication: PARKINSON^S DISEASE
     Dosage: ONE 1/2 TABLET OF A 25 MG
     Route: 065
     Dates: start: 20141104
  7. CLOZAPINE. [Suspect]
     Active Substance: CLOZAPINE
     Dosage: ONE 1/4 TABLET OF A 25 MG
     Route: 065
     Dates: start: 20140923

REACTIONS (1)
  - Cerebral venous thrombosis [Recovering/Resolving]
